FAERS Safety Report 25978307 (Version 1)
Quarter: 2025Q4

REPORT INFORMATION
  Report Type: Spontaneous
  Country: EU (occurrence: EU)
  Receive Date: 20251030
  Receipt Date: 20251030
  Transmission Date: 20260118
  Serious: Yes (Other)
  Sender: UNITED THERAPEUTICS
  Company Number: EU-UNITED THERAPEUTICS-UNT-2025-035925

PATIENT
  Age: 54 Year

DRUGS (5)
  1. REMODULIN [Suspect]
     Active Substance: TREPROSTINIL
     Indication: Heritable pulmonary arterial hypertension
     Dosage: 0.060 ?G/KG, CONTINUING
  2. REMODULIN [Suspect]
     Active Substance: TREPROSTINIL
     Dosage: UNK, CONTINUING
  3. SILDENAFIL [Concomitant]
     Active Substance: SILDENAFIL
     Indication: Heritable pulmonary arterial hypertension
     Dosage: 60 MG, Q8H
  4. MACITENTAN [Concomitant]
     Active Substance: MACITENTAN
     Indication: Heritable pulmonary arterial hypertension
     Dosage: UNK
  5. SOTATERCEPT [Concomitant]
     Active Substance: SOTATERCEPT
     Indication: Heritable pulmonary arterial hypertension
     Dosage: UNK

REACTIONS (3)
  - Invasive ductal breast carcinoma [Not Recovered/Not Resolved]
  - Ventricular remodelling [Unknown]
  - Haemodynamic instability [Unknown]
